FAERS Safety Report 5670632-1 (Version None)
Quarter: 2008Q1

REPORT INFORMATION
  Report Type: 
  Country: None (occurrence: None)
  Receive Date: 20080318
  Receipt Date: 20080311
  Transmission Date: 20080703
  Serious: Yes (Hospitalization)
  Sender: FDA-Public Use
  Company Number: US-AVENTIS-200811507GDDC

PATIENT
  Age: 39 Year
  Sex: Male
  Weight: 106.4 kg

DRUGS (6)
  1. LANTUS [Suspect]
     Route: 058
     Dates: start: 20070405
  2. NOVOLIN R [Suspect]
     Route: 058
     Dates: start: 20070618
  3. LEVEMIR [Suspect]
     Route: 058
     Dates: end: 20080131
  4. METOPROLOL TARTRATE [Concomitant]
     Route: 048
  5. HYDROCHLOROTHIAZIDE [Concomitant]
     Route: 048
     Dates: start: 20070608, end: 20080131
  6. LISINOPRIL [Concomitant]
     Route: 048
     Dates: start: 20070608

REACTIONS (3)
  - BLOOD GLUCOSE INCREASED [None]
  - DIABETIC KETOACIDOSIS [None]
  - GASTROOESOPHAGEAL REFLUX DISEASE [None]
